FAERS Safety Report 6728207-9 (Version None)
Quarter: 2010Q2

REPORT INFORMATION
  Report Type: 
  Country: None (occurrence: None)
  Receive Date: 20100517
  Receipt Date: 20100512
  Transmission Date: 20101027
  Serious: Yes (Other)
  Sender: FDA-Public Use
  Company Number: B0653117A

PATIENT
  Sex: Female

DRUGS (1)
  1. FLIXONASE [Suspect]
     Route: 065
     Dates: start: 20100223, end: 20100320

REACTIONS (1)
  - ANOSMIA [None]
